FAERS Safety Report 5960348-6 (Version None)
Quarter: 2008Q4

REPORT INFORMATION
  Report Type: 
  Country: None (occurrence: None)
  Receive Date: 20081120
  Receipt Date: 20081106
  Transmission Date: 20090506
  Serious: Yes (Hospitalization)
  Sender: FDA-Public Use
  Company Number: US-ELI_LILLY_AND_COMPANY-US200804001410

PATIENT
  Age: 74 Year
  Sex: Female
  Weight: 79.819 kg

DRUGS (8)
  1. EVISTA [Suspect]
     Indication: OSTEOPOROSIS
     Dosage: 60 MG, UNK
     Route: 065
     Dates: end: 20071109
  2. ATENOLOL [Concomitant]
  3. AMLODIPINE [Concomitant]
  4. SIMVASTATIN [Concomitant]
  5. PULMICORT-100 [Concomitant]
  6. OMEPRAZOLE [Concomitant]
  7. ALLEGRA [Concomitant]
  8. ALBUTEROL [Concomitant]
     Dosage: UNK, UNKNOWN
     Route: 055

REACTIONS (2)
  - OSTEOARTHRITIS [None]
  - PULMONARY EMBOLISM [None]
